FAERS Safety Report 8615467-2 (Version None)
Quarter: 2012Q3

REPORT INFORMATION
  Report Type: 
  Country: None (occurrence: None)
  Receive Date: 20120823
  Receipt Date: 20120817
  Transmission Date: 20120928
  Serious: Yes (Hospitalization, Other)
  Sender: FDA-Public Use
  Company Number: FR-ELI_LILLY_AND_COMPANY-FR201208005182

PATIENT
  Sex: Male

DRUGS (9)
  1. PERINDOPRIL ERBUMINE [Concomitant]
  2. EFFIENT [Suspect]
     Dosage: 10 MG, QD
     Route: 048
     Dates: start: 20120422
  3. ACETAMINOPHEN AND TRAMADOL HCL [Concomitant]
  4. ESOMEPRAZOLE SODIUM [Concomitant]
  5. ACEBUTOLOL [Concomitant]
  6. NITROGLYCERIN [Concomitant]
  7. ASPIRIN [Concomitant]
     Dosage: 75 MG, QD
     Dates: start: 20120422
  8. LAMALINE [Concomitant]
  9. ATORVASTATIN [Concomitant]

REACTIONS (3)
  - GASTROINTESTINAL HAEMORRHAGE [None]
  - ANAEMIA [None]
  - PRESYNCOPE [None]
